FAERS Safety Report 4711918-4 (Version None)
Quarter: 2005Q3

REPORT INFORMATION
  Report Type: 
  Country: None (occurrence: None)
  Receive Date: 20050711
  Receipt Date: 20050711
  Transmission Date: 20060218
  Serious: Yes (Other)
  Sender: FDA-Public Use
  Company Number: None

PATIENT
  Age: 16 Year
  Sex: Female

DRUGS (9)
  1. NUTROPIN AQ [Suspect]
     Indication: PITUITARY TUMOUR
     Dosage: 0.3 MG SUBCUTANEOUS DAILY
     Route: 058
     Dates: start: 20050602
  2. SINGULAIR [Concomitant]
  3. HYDROCHLOROTHIAZIDE [Concomitant]
  4. ALLEGRA [Concomitant]
  5. ADVAIR DISKUS 100/50 [Concomitant]
  6. SYNTHROID [Concomitant]
  7. DEPAKOTE ER [Concomitant]
  8. ZOLOFT [Concomitant]
  9. SEROQUEL [Concomitant]

REACTIONS (5)
  - DEVICE FAILURE [None]
  - HYPERHIDROSIS [None]
  - INCORRECT DOSE ADMINISTERED [None]
  - MEDICATION ERROR [None]
  - SOMNOLENCE [None]
